FAERS Safety Report 4449371-0 (Version None)
Quarter: 2004Q3

REPORT INFORMATION
  Report Type: 
  Country: None (occurrence: None)
  Receive Date: 20040913
  Receipt Date: 20040826
  Transmission Date: 20050211
  Serious: Yes (Hospitalization)
  Sender: FDA-Public Use
  Company Number: 201516

PATIENT
  Age: 52 Year
  Sex: Female

DRUGS (6)
  1. AVONEX [Suspect]
     Indication: MULTIPLE SCLEROSIS
     Dates: start: 20030625
  2. LEXAPRO [Concomitant]
  3. DITROPAN [Concomitant]
  4. VICODIN [Concomitant]
  5. NEURONTIN [Concomitant]
  6. CELEBREX [Concomitant]

REACTIONS (7)
  - BLOOD ELECTROLYTES DECREASED [None]
  - BLOOD POTASSIUM DECREASED [None]
  - CARDIAC FAILURE CONGESTIVE [None]
  - DEHYDRATION [None]
  - IMMOBILE [None]
  - NAUSEA [None]
  - PNEUMONIA [None]
